FAERS Safety Report 14132950 (Version 2)
Quarter: 2019Q3

REPORT INFORMATION
  Report Type: Spontaneous
  Country: FR (occurrence: FR)
  Receive Date: 20171027
  Receipt Date: 20190709
  Transmission Date: 20191004
  Serious: Yes (Death, Life-Threatening, Hospitalization, Other)
  Sender: FDA-Public Use
  Company Number: FR-STRIDES ARCOLAB LIMITED-2017SP013671

PATIENT
  Age: 25 Year
  Sex: Male

DRUGS (6)
  1. NOREPINEPHRINE. [Concomitant]
     Active Substance: NOREPINEPHRINE
     Indication: PRODUCT USED FOR UNKNOWN INDICATION
     Dosage: 9 MG, EVERY HOUR
     Route: 065
  2. AMOXICILLIN CLAVULANIC ACID [Concomitant]
     Active Substance: AMOXICILLIN\CLAVULANIC ACID
     Indication: PRODUCT USED FOR UNKNOWN INDICATION
     Dosage: 2 G, UNKNOWN
     Route: 042
  3. AMIKACIN. [Concomitant]
     Active Substance: AMIKACIN
     Indication: PRODUCT USED FOR UNKNOWN INDICATION
     Dosage: UNK
     Route: 065
  4. IBUPROFEN. [Suspect]
     Active Substance: IBUPROFEN
     Indication: PHARYNGITIS
     Dosage: UNK
     Route: 048
  5. CLINDAMYCIN. [Concomitant]
     Active Substance: CLINDAMYCIN
     Indication: PRODUCT USED FOR UNKNOWN INDICATION
     Dosage: 600 MG, UNKNOWN
     Route: 065
  6. IMMUNOGLOBULIN IV [Concomitant]
     Active Substance: HUMAN IMMUNOGLOBULIN G
     Indication: TOXIC SHOCK SYNDROME
     Dosage: 0.5 G/KG
     Route: 042

REACTIONS (8)
  - Haemorrhage intracranial [Unknown]
  - Septic shock [Fatal]
  - Disseminated intravascular coagulation [Unknown]
  - Shock haemorrhagic [Unknown]
  - Sepsis [Fatal]
  - Decreased immune responsiveness [Unknown]
  - Agranulocytosis [Unknown]
  - Condition aggravated [Fatal]
